FAERS Safety Report 11642623 (Version 1)
Quarter: 2015Q4

REPORT INFORMATION
  Report Type: Spontaneous
  Country: US (occurrence: US)
  Receive Date: 20151020
  Receipt Date: 20151020
  Transmission Date: 20160304
  Serious: No
  Sender: FDA-Public Use
  Company Number: US-AMGEN-USASP2015106416

PATIENT
  Age: 10 Year
  Sex: Female
  Weight: 31.75 kg

DRUGS (1)
  1. ENBREL [Suspect]
     Active Substance: ETANERCEPT
     Indication: GUTTATE PSORIASIS
     Dosage: 25 MG, QWK
     Route: 058

REACTIONS (2)
  - Incorrect product storage [Unknown]
  - Off label use [Unknown]
